FAERS Safety Report 11321452 (Version 1)
Quarter: 2015Q3

REPORT INFORMATION
  Report Type: Spontaneous
  Country: US (occurrence: US)
  Receive Date: 20150729
  Receipt Date: 20150729
  Transmission Date: 20151125
  Serious: No
  Sender: FDA-Public Use
  Company Number: US-ENDO PHARMACEUTICALS INC.-2015-001759

PATIENT
  Age: 78 Year
  Sex: Male
  Weight: 136.2 kg

DRUGS (8)
  1. DICLOFANAC [Concomitant]
     Indication: PRODUCT USED FOR UNKNOWN INDICATION
  2. TESTOPEL [Suspect]
     Active Substance: TESTOSTERONE
     Indication: HYPOGONADISM
     Dosage: TEN PELLETS INSERTED
     Route: 058
     Dates: start: 20150511
  3. TESTOPEL [Suspect]
     Active Substance: TESTOSTERONE
     Route: 058
     Dates: start: 20130523
  4. DUREZOL [Concomitant]
     Active Substance: DIFLUPREDNATE
     Indication: PRODUCT USED FOR UNKNOWN INDICATION
  5. BYSTOLIC [Concomitant]
     Active Substance: NEBIVOLOL HYDROCHLORIDE
     Indication: HYPERTENSION
  6. BRIMONIDINE [Concomitant]
     Active Substance: BRIMONIDINE TARTRATE
     Indication: PRODUCT USED FOR UNKNOWN INDICATION
  7. TESTOPEL [Suspect]
     Active Substance: TESTOSTERONE
     Dosage: TEN PELLETS INSERTED
     Route: 058
     Dates: start: 20140407
  8. DORZALOMIDE [Concomitant]
     Indication: PRODUCT USED FOR UNKNOWN INDICATION

REACTIONS (5)
  - Implant site swelling [Recovered/Resolved]
  - Prescribed overdose [Not Recovered/Not Resolved]
  - Expulsion of medication [Recovered/Resolved]
  - Implant site erythema [Recovered/Resolved]
  - Implant site haemorrhage [Recovered/Resolved]

NARRATIVE: CASE EVENT DATE: 20140407
